FAERS Safety Report 6355712-X (Version None)
Quarter: 2009Q3

REPORT INFORMATION
  Report Type: 
  Country: None (occurrence: None)
  Receive Date: 20090910
  Receipt Date: 20090903
  Transmission Date: 20100115
  Serious: Yes (Death, Other)
  Sender: FDA-Public Use
  Company Number: 2009JP005412

PATIENT
  Age: 39 Year
  Sex: Male

DRUGS (11)
  1. TACROLIMUS [Suspect]
     Indication: LIVER TRANSPLANT
     Dates: start: 20050101
  2. METHYLPREDNISOLONE [Suspect]
     Indication: LIVER TRANSPLANT
     Dates: start: 20050101
  3. PIPERACILLIN W/TAZOBACTAM (PIPERACILLIN, TAZOBACTAM) FORMULATION UNKNO [Concomitant]
  4. GANCICLOVIR (GANCICLOVIR) FORMULATION UNKNOWN [Concomitant]
  5. FLUCONAZOL (FLUCONAZOLE) FORMULATION UNKNOWN [Concomitant]
  6. LAMIVUDINE (LAMIVUDINE) FORMULATION UNKNOWN [Concomitant]
  7. IMIPENEM (IMIPENEM) FORMULATION UNKNOWN [Concomitant]
  8. MEROPENEM (MEROPENEM) FORMULATION UNKNOWN [Concomitant]
  9. TEICOPLANIN FORMULATION UNKNOWN [Concomitant]
  10. CARBAPENEMS FORMULATION UNKNOWN [Concomitant]
  11. NORVANCOMYCIN (NORVANCOMYCIN) FORMULATION UNKNOWN [Concomitant]

REACTIONS (6)
  - BILIARY FISTULA [None]
  - ENTEROBACTER SEPSIS [None]
  - INTESTINAL FISTULA [None]
  - LIVER ABSCESS [None]
  - MULTI-ORGAN FAILURE [None]
  - SEPTIC SHOCK [None]
